FAERS Safety Report 15307274 (Version 1)
Quarter: 2018Q4

REPORT INFORMATION
  Report Type: Spontaneous
  Country: IL (occurrence: IL)
  Receive Date: 20180822
  Receipt Date: 20180822
  Transmission Date: 20190204
  Serious: Yes (Death, Other)
  Sender: FDA-Public Use
  Company Number: IL-PFIZER INC-2018335836

PATIENT
  Age: 55 Year
  Sex: Female

DRUGS (7)
  1. DEKINET [BIPERIDEN HYDROCHLORIDE] [Suspect]
     Active Substance: BIPERIDEN HYDROCHLORIDE
  2. CLONEX [CLONAZEPAM] [Suspect]
     Active Substance: CLONAZEPAM
     Dosage: UNK UNK, 2X/DAY
  3. XEPLION [Suspect]
     Active Substance: PALIPERIDONE PALMITATE
     Indication: PSYCHOTIC DISORDER
     Dosage: 150 MG
     Dates: start: 201711, end: 20180710
  4. LIPITOR [Suspect]
     Active Substance: ATORVASTATIN CALCIUM
  5. LAMICTAL [Suspect]
     Active Substance: LAMOTRIGINE
     Dosage: 150
  6. IMOVANE [Suspect]
     Active Substance: ZOPICLONE
     Indication: SLEEP DISORDER
  7. RISPERDAL [Suspect]
     Active Substance: RISPERIDONE
     Indication: MENTAL DISORDER

REACTIONS (13)
  - Anxiety [Unknown]
  - White blood cells urine positive [Unknown]
  - Psychomotor retardation [Unknown]
  - Balance disorder [Unknown]
  - Dysstasia [Unknown]
  - Dysphagia [Unknown]
  - Blood creatine phosphokinase increased [Unknown]
  - Heart rate increased [Unknown]
  - Blood bilirubin increased [Unknown]
  - Death [Fatal]
  - Neuroleptic malignant syndrome [Unknown]
  - Hypertonia [Unknown]
  - Leukocytosis [Unknown]

NARRATIVE: CASE EVENT DATE: 20180712
